FAERS Safety Report 8545635-X (Version None)
Quarter: 2012Q3

REPORT INFORMATION
  Report Type: 
  Country: None (occurrence: None)
  Receive Date: 20120727
  Receipt Date: 20120716
  Transmission Date: 20120928
  Serious: Yes (Other)
  Sender: FDA-Public Use
  Company Number: ES-TEVA-349023ISR

PATIENT
  Age: 38 Year
  Sex: Female

DRUGS (6)
  1. BUSCAPINA [Concomitant]
     Indication: RENAL PAIN
     Route: 042
  2. DIPYRONE INJ [Concomitant]
     Indication: RENAL PAIN
     Route: 042
  3. DICLOFENAC [Suspect]
     Indication: RENAL PAIN
     Route: 030
  4. ACETAMINOPHEN [Concomitant]
     Indication: RENAL PAIN
     Route: 042
  5. DIAZEPAM [Concomitant]
     Indication: RENAL PAIN
     Route: 042
  6. MEPERIDINE HCL [Concomitant]
     Indication: RENAL PAIN
     Route: 065

REACTIONS (2)
  - OLIGOHYDRAMNIOS [None]
  - MATERNAL EXPOSURE DURING PREGNANCY [None]
